FAERS Safety Report 15155601 (Version 1)
Quarter: 2018Q3

REPORT INFORMATION
  Report Type: Spontaneous
  Country: FR (occurrence: FR)
  Receive Date: 20180717
  Receipt Date: 20180717
  Transmission Date: 20181010
  Serious: Yes (Hospitalization, Other)
  Sender: FDA-Public Use
  Company Number: FR-MYLANLABS-2018M1050876

PATIENT
  Age: 89 Year
  Sex: Male

DRUGS (7)
  1. DAFALGAN CODEINE [Suspect]
     Active Substance: ACETAMINOPHEN\CODEINE PHOSPHATE
     Indication: BACK PAIN
     Dosage: UNK
     Route: 048
  2. PERMIXON [Suspect]
     Active Substance: HERBALS\SAW PALMETTO
     Indication: MICTURITION DISORDER
     Dosage: 1 DF, UNK
     Route: 048
  3. ISOPTIN [Suspect]
     Active Substance: VERAPAMIL HYDROCHLORIDE
     Indication: HYPERTENSION
     Dosage: 0.5 MG, QHS
     Route: 048
  4. LAMALINE                           /00764901/ [Suspect]
     Active Substance: ACETAMINOPHEN\BELLADONNA LEAF\CAFFEINE\OPIUM
     Indication: BACK PAIN
     Dosage: UNK
     Route: 048
  5. PREVISCAN                          /00789001/ [Suspect]
     Active Substance: FLUINDIONE
     Indication: ATRIAL FIBRILLATION
     Dosage: UNK
     Route: 048
  6. PREDNISOLONE. [Suspect]
     Active Substance: PREDNISOLONE
     Indication: BACK PAIN
     Dosage: UNK
     Route: 048
  7. ZESTORETIC [Suspect]
     Active Substance: HYDROCHLOROTHIAZIDE\LISINOPRIL
     Indication: HYPERTENSION
     Dosage: 1 DF, UNK
     Route: 048

REACTIONS (4)
  - Loss of consciousness [Not Recovered/Not Resolved]
  - Confusional state [Not Recovered/Not Resolved]
  - Product use issue [Unknown]
  - Fall [Not Recovered/Not Resolved]

NARRATIVE: CASE EVENT DATE: 201511
